FAERS Safety Report 4721515-2 (Version None)
Quarter: 2005Q3

REPORT INFORMATION
  Report Type: 
  Country: None (occurrence: None)
  Receive Date: 20050721
  Receipt Date: 20041028
  Transmission Date: 20060218
  Serious: No
  Sender: FDA-Public Use
  Company Number: US-BRISTOL-MYERS SQUIBB COMPANY-12749800

PATIENT
  Age: 90 Year
  Sex: Female
  Weight: 63 kg

DRUGS (3)
  1. COUMADIN [Suspect]
     Indication: CORONARY ARTERIAL STENT INSERTION
     Dosage: THE CONSUMER WAS ON COUMADIN ^A FEW YEARS AGO^ AND DC'D. RESTARTED 3 MONTHS AGO.
     Route: 048
  2. TYLENOL [Concomitant]
  3. CELEBREX [Concomitant]

REACTIONS (1)
  - OSTEOARTHRITIS [None]
